FAERS Safety Report 19969060 (Version 2)
Quarter: 2022Q1

REPORT INFORMATION
  Report Type: Spontaneous
  Country: DE (occurrence: DE)
  Receive Date: 20211019
  Receipt Date: 20220228
  Transmission Date: 20220424
  Serious: Yes (Other)
  Sender: FDA-Public Use
  Company Number: DE-PFIZER INC-202101316387

PATIENT
  Age: 69 Year
  Sex: Female

DRUGS (2)
  1. LORAZEPAM [Suspect]
     Active Substance: LORAZEPAM
     Indication: Oral pain
     Dosage: 1 MG
     Dates: start: 2018
  2. LORAZEPAM [Suspect]
     Active Substance: LORAZEPAM
     Indication: Oral discomfort
     Dosage: 0.5 MG

REACTIONS (11)
  - Incorrect product administration duration [Unknown]
  - Drug dependence [Unknown]
  - Metal poisoning [Unknown]
  - Feeding disorder [Unknown]
  - Weight decreased [Unknown]
  - Alopecia [Unknown]
  - Withdrawal syndrome [Unknown]
  - Intentional product misuse [Unknown]
  - Off label use [Unknown]
  - Drug ineffective for unapproved indication [Unknown]
  - Product prescribing error [Unknown]

NARRATIVE: CASE EVENT DATE: 20210101
